FAERS Safety Report 24257596 (Version 1)
Quarter: 2024Q3

REPORT INFORMATION
  Report Type: Spontaneous
  Country: JP (occurrence: JP)
  Receive Date: 20240828
  Receipt Date: 20240828
  Transmission Date: 20241016
  Serious: Yes (Hospitalization, Other)
  Sender: BRISTOL MYERS SQUIBB
  Company Number: JP-BRISTOL-MYERS SQUIBB COMPANY-2024-134651

PATIENT
  Age: 64 Year
  Sex: Female

DRUGS (3)
  1. YERVOY [Suspect]
     Active Substance: IPILIMUMAB
     Indication: Non-small cell lung cancer
     Dosage: DOSE : UNAVAILABLE;     FREQ : UNAVAILABLE
     Route: 041
  2. OPDIVO [Suspect]
     Active Substance: NIVOLUMAB
     Indication: Non-small cell lung cancer
  3. PREDNISOLONE [Concomitant]
     Active Substance: PREDNISOLONE
     Indication: Rheumatoid arthritis

REACTIONS (9)
  - Arthritis [Recovered/Resolved]
  - Diarrhoea [Recovered/Resolved]
  - Cryptitis [Unknown]
  - Abscess intestinal [Unknown]
  - Amylase increased [Unknown]
  - Lipase increased [Unknown]
  - Malignant neoplasm progression [Unknown]
  - Cytomegalovirus test positive [Unknown]
  - Pancreatic enzymes increased [Recovering/Resolving]
